FAERS Safety Report 8518057 (Version 3)
Quarter: 2014Q2

REPORT INFORMATION
  Report Type: Spontaneous
  Country: US (occurrence: US)
  Receive Date: 20120417
  Receipt Date: 20130702
  Transmission Date: 20141212
  Serious: Yes (Other)
  Sender: FDA-Public Use
  Company Number: US-ASTRAZENECA-2011SE60541

PATIENT
  Age: 42 Year
  Sex: Female

DRUGS (1)
  1. NEXIUM [Suspect]
     Route: 048

REACTIONS (5)
  - Exposure during pregnancy [Unknown]
  - Abortion spontaneous [Unknown]
  - Chest pain [Unknown]
  - Malaise [Unknown]
  - Drug dose omission [Unknown]
